FAERS Safety Report 9157375 (Version 1)
Quarter: 2013Q1

REPORT INFORMATION
  Report Type: Spontaneous
  Country: US (occurrence: US)
  Receive Date: 20130312
  Receipt Date: 20130312
  Transmission Date: 20140127
  Serious: Yes (Other)
  Sender: FDA-Public Use
  Company Number: US-JNJFOC-20130303626

PATIENT
  Age: 33 Year
  Sex: Female
  Weight: 56.7 kg

DRUGS (2)
  1. ZYRTEC-D [Suspect]
     Indication: SINUS DISORDER
     Dosage: 1 TABLET EVERY NIGHT BEFORE BED
     Route: 048
     Dates: start: 20130217, end: 20130221
  2. ZYRTEC-D [Suspect]
     Indication: NASAL DECONGESTION THERAPY
     Dosage: 1 TABLET EVERY NIGHT BEFORE BED
     Route: 048
     Dates: start: 20130217, end: 20130221

REACTIONS (2)
  - Sleep apnoea syndrome [Recovered/Resolved]
  - Disease recurrence [None]
